FAERS Safety Report 18551293 (Version 3)
Quarter: 2021Q1

REPORT INFORMATION
  Report Type: Report from Study
  Country: US (occurrence: US)
  Receive Date: 20201126
  Receipt Date: 20210120
  Transmission Date: 20210419
  Serious: Yes (Death)
  Sender: FDA-Public Use
  Company Number: US-SA-2020SA341226

PATIENT
  Age: 61 Year
  Sex: Male

DRUGS (14)
  1. DKN?01. [Suspect]
     Active Substance: DKN-01
     Dosage: 300 MG, Q3W (DAY 1, 15 IN Q21D)
     Route: 042
     Dates: start: 20201015, end: 20201015
  2. OXALIPLATIN. [Suspect]
     Active Substance: OXALIPLATIN
     Indication: OESOPHAGEAL ADENOCARCINOMA
     Dosage: 300 MG
     Route: 065
     Dates: start: 20201105, end: 20201105
  3. OLANZAPINE. [Concomitant]
     Active Substance: OLANZAPINE
     Dosage: UNK
     Route: 065
     Dates: start: 20201116, end: 20201117
  4. CAPECITABINE. [Suspect]
     Active Substance: CAPECITABINE
     Indication: OESOPHAGEAL ADENOCARCINOMA
     Dosage: 2250 MG
     Route: 065
     Dates: start: 20201117, end: 20201117
  5. COMPAZINE [Concomitant]
     Active Substance: PROCHLORPERAZINE MALEATE
     Dosage: UNK
     Route: 065
     Dates: start: 20201105, end: 20201117
  6. TISLELIZUMAB [Suspect]
     Active Substance: TISLELIZUMAB
     Dosage: 200 MG, Q3W (DAY 1 Q21D)
     Route: 042
     Dates: start: 20201015, end: 20201015
  7. OXALIPLATIN. [Suspect]
     Active Substance: OXALIPLATIN
     Dosage: 130 MG/M2, Q3W (DAY 1 Q21D)
     Route: 042
     Dates: start: 20201015, end: 20201015
  8. LORAZEPAM. [Concomitant]
     Active Substance: LORAZEPAM
     Dosage: UNK
     Route: 065
     Dates: start: 20201116, end: 20201117
  9. SUCRALFATE. [Concomitant]
     Active Substance: SUCRALFATE
     Dosage: UNK
     Route: 065
     Dates: start: 20201029, end: 20201117
  10. TISLELIZUMAB [Suspect]
     Active Substance: TISLELIZUMAB
     Indication: OESOPHAGEAL ADENOCARCINOMA
     Dosage: 200 MG
     Route: 065
     Dates: start: 20201105, end: 20201105
  11. ESOMEPRAZOLE. [Concomitant]
     Active Substance: ESOMEPRAZOLE MAGNESIUM
     Dosage: UNK
     Route: 065
     Dates: start: 20201105, end: 20201117
  12. DKN?01. [Suspect]
     Active Substance: DKN-01
     Indication: OESOPHAGEAL ADENOCARCINOMA
     Dosage: 300 MG
     Route: 065
     Dates: start: 20201105, end: 20201105
  13. CAPECITABINE. [Suspect]
     Active Substance: CAPECITABINE
     Dosage: 10000 MG/M2, BID (DAYS 1?15, Q21D,)
     Route: 048
     Dates: start: 20201015, end: 20201015
  14. ONDANSETRON [Concomitant]
     Active Substance: ONDANSETRON
     Dosage: UNK
     Route: 065
     Dates: start: 20201009, end: 20201117

REACTIONS (1)
  - Pulmonary embolism [Fatal]

NARRATIVE: CASE EVENT DATE: 20201117
